FAERS Safety Report 9915221 (Version 1)
Quarter: 2014Q1

REPORT INFORMATION
  Report Type: Report from Study
  Country: TR (occurrence: TR)
  Receive Date: 20140220
  Receipt Date: 20140220
  Transmission Date: 20141002
  Serious: Yes (Other)
  Sender: FDA-Public Use
  Company Number: TR-US-EMD SERONO, INC.-7269631

PATIENT
  Age: 32 Year
  Sex: Female
  Weight: 66 kg

DRUGS (2)
  1. REBIF [Suspect]
     Indication: MULTIPLE SCLEROSIS
  2. LEVOTIRON [Suspect]
     Indication: HYPERTHYROIDISM

REACTIONS (2)
  - Osteomalacia [Not Recovered/Not Resolved]
  - Injection site pain [Not Recovered/Not Resolved]
